FAERS Safety Report 24388996 (Version 1)
Quarter: 2024Q4

REPORT INFORMATION
  Report Type: Spontaneous
  Country: US (occurrence: US)
  Receive Date: 20241002
  Receipt Date: 20241002
  Transmission Date: 20250115
  Serious: Yes (Hospitalization, Other)
  Sender: MERCK
  Company Number: US-CUBIST PHARMACEUTICALS, INC.-2009S1000464

PATIENT
  Age: 1 Day
  Sex: Male
  Weight: 3.1 kg

DRUGS (1)
  1. CUBICIN [Suspect]
     Active Substance: DAPTOMYCIN
     Indication: Product used for unknown indication
     Dosage: UNK UNK, UNK
     Route: 064
     Dates: start: 20081111, end: 20081218

REACTIONS (2)
  - Drug withdrawal syndrome neonatal [Recovered/Resolved]
  - Opiates positive [Unknown]

NARRATIVE: CASE EVENT DATE: 20090401
